FAERS Safety Report 7828583-X (Version None)
Quarter: 2011Q4

REPORT INFORMATION
  Report Type: 
  Country: None (occurrence: None)
  Receive Date: 20111020
  Receipt Date: 20111020
  Transmission Date: 20120403
  Serious: Yes (Other)
  Sender: FDA-Public Use
  Company Number: None

PATIENT
  Age: 44 Year
  Sex: Female
  Weight: 54.431 kg

DRUGS (2)
  1. KETOPROFEN [Suspect]
     Indication: LOCAL SWELLING
     Dosage: 100 MG
     Route: 048
     Dates: start: 20030612, end: 20030615
  2. KETOPROFEN [Suspect]
     Indication: PAIN IN EXTREMITY
     Dosage: 100 MG
     Route: 048
     Dates: start: 20030612, end: 20030615

REACTIONS (1)
  - ANGER [None]
